FAERS Safety Report 13329494 (Version 1)
Quarter: 2017Q1

REPORT INFORMATION
  Report Type: Spontaneous
  Country: KR (occurrence: KR)
  Receive Date: 20170313
  Receipt Date: 20170313
  Transmission Date: 20170428
  Serious: Yes (Hospitalization, Other)
  Sender: FDA-Public Use
  Company Number: KR-JNJFOC-20170308217

PATIENT
  Age: 78 Year
  Sex: Male

DRUGS (1)
  1. XARELTO [Suspect]
     Active Substance: RIVAROXABAN
     Indication: CEREBRAL INFARCTION
     Route: 048

REACTIONS (2)
  - Haemorrhagic cerebral infarction [Recovering/Resolving]
  - Cerebral infarction [Recovering/Resolving]
